FAERS Safety Report 4952163-7 (Version None)
Quarter: 2006Q1

REPORT INFORMATION
  Report Type: 
  Country: None (occurrence: None)
  Receive Date: 20060127
  Receipt Date: 20050531
  Transmission Date: 20060701
  Serious: Yes (Hospitalization)
  Sender: FDA-Public Use
  Company Number: 05-05-0954

PATIENT
  Age: 70 Year
  Sex: Female

DRUGS (1)
  1. CLOZAPINE [Suspect]
     Indication: DEPRESSION
     Dosage: 25-300MG QD, ORAL
     Route: 048
     Dates: start: 20010201

REACTIONS (1)
  - PSYCHIATRIC EVALUATION [None]
